FAERS Safety Report 6212760-8 (Version None)
Quarter: 2009Q2

REPORT INFORMATION
  Report Type: 
  Country: None (occurrence: None)
  Receive Date: 20090603
  Receipt Date: 20090526
  Transmission Date: 20091009
  Serious: Yes (Hospitalization)
  Sender: FDA-Public Use
  Company Number: US-BAYER-200921712NA

PATIENT
  Age: 68 Year
  Sex: Female
  Weight: 88 kg

DRUGS (14)
  1. SORAFENIB [Suspect]
     Indication: ANAPLASTIC ASTROCYTOMA
     Dosage: TOTAL DAILY DOSE: 800 MG  UNIT DOSE: 200 MG
     Route: 048
     Dates: start: 20090510, end: 20090521
  2. TEMODAR [Suspect]
     Indication: ANAPLASTIC ASTROCYTOMA
     Dosage: TOTAL DAILY DOSE: 75 MG/M2
     Route: 048
     Dates: start: 20090510
  3. CIPROFLOXACIN [Concomitant]
  4. BENADRYL [Concomitant]
  5. XALATAN [Concomitant]
  6. BRIMONIDINE TARTRATE [Concomitant]
  7. NEXIUM [Concomitant]
  8. KEPPRA [Concomitant]
  9. DECADRON [Concomitant]
  10. TRIAMTERENE [Concomitant]
  11. SYNTHROID [Concomitant]
  12. NORVASC [Concomitant]
  13. SENNA [Concomitant]
  14. DAPSONE [Concomitant]
     Dates: end: 20090521

REACTIONS (5)
  - HYPERGLYCAEMIA [None]
  - HYPONATRAEMIA [None]
  - HYPOPHOSPHATAEMIA [None]
  - LIVER FUNCTION TEST ABNORMAL [None]
  - RASH [None]
